FAERS Safety Report 7720991-0 (Version None)
Quarter: 2011Q3

REPORT INFORMATION
  Report Type: 
  Country: None (occurrence: None)
  Receive Date: 20110831
  Receipt Date: 20110826
  Transmission Date: 20111222
  Serious: Yes (Other)
  Sender: FDA-Public Use
  Company Number: JP-B.I. PHARMACEUTICALS,INC./RIDGEFIELD-2011-BP-17006NB

PATIENT
  Sex: Male
  Weight: 63.7 kg

DRUGS (8)
  1. VALSARTAN  AND HYDROCHLOROTHIAZIDE [Concomitant]
     Indication: HYPERTENSION
     Route: 048
     Dates: start: 20110104
  2. PERINDOPRIL ERBUMINE [Concomitant]
     Indication: CARDIAC FAILURE
     Dosage: 4 MG
     Route: 048
     Dates: start: 20110208
  3. PRADAXA [Suspect]
     Indication: ATRIAL FIBRILLATION
     Dosage: 300 MG
     Route: 048
     Dates: start: 20110607, end: 20110620
  4. CARVEDILOL [Concomitant]
     Indication: CARDIAC FAILURE
     Dosage: 20 MG
     Route: 048
     Dates: start: 20030327
  5. SPIRONOLACTONE [Concomitant]
     Indication: CARDIAC FAILURE
     Dosage: 25 MG
     Route: 048
     Dates: start: 20110315
  6. ANYRUME [Suspect]
     Indication: UPPER RESPIRATORY TRACT INFLAMMATION
     Dosage: 7.2 MG
     Route: 048
     Dates: start: 20110514, end: 20110518
  7. MEIACT [Suspect]
     Indication: UPPER RESPIRATORY TRACT INFLAMMATION
     Dosage: 300 MG
     Route: 048
     Dates: start: 20110514, end: 20110518
  8. BEZATOL SR [Concomitant]
     Indication: LIPIDS ABNORMAL
     Dosage: 400 MG
     Route: 048
     Dates: start: 19971025

REACTIONS (1)
  - RENAL DISORDER [None]
